FAERS Safety Report 11413916 (Version 1)
Quarter: 2015Q3

REPORT INFORMATION
  Report Type: Spontaneous
  Country: US (occurrence: US)
  Receive Date: 20150824
  Receipt Date: 20150824
  Transmission Date: 20151125
  Serious: Yes (Hospitalization, Other)
  Sender: FDA-Public Use
  Company Number: US-GLAXOSMITHKLINE-US2015120639

PATIENT
  Age: 67 Year
  Sex: Female

DRUGS (6)
  1. SPIRIVA [Concomitant]
     Active Substance: TIOTROPIUM BROMIDE MONOHYDRATE
  2. ADVAIR DISKUS [Suspect]
     Active Substance: FLUTICASONE PROPIONATE\SALMETEROL XINAFOATE
  3. LOSARTAN. [Concomitant]
     Active Substance: LOSARTAN
  4. ADVAIR DISKUS [Suspect]
     Active Substance: FLUTICASONE PROPIONATE\SALMETEROL XINAFOATE
  5. ADVAIR DISKUS [Suspect]
     Active Substance: FLUTICASONE PROPIONATE\SALMETEROL XINAFOATE
     Indication: CHRONIC OBSTRUCTIVE PULMONARY DISEASE
     Dosage: 250/50 MCG
     Route: 055
     Dates: start: 2002
  6. CITALOPRAM [Concomitant]
     Active Substance: CITALOPRAM HYDROBROMIDE

REACTIONS (7)
  - Metastases to lymph nodes [Unknown]
  - Metastases to liver [Unknown]
  - Mastectomy [Recovered/Resolved]
  - Breast cancer metastatic [Not Recovered/Not Resolved]
  - Metastasis [Unknown]
  - Metastases to chest wall [Unknown]
  - Pneumonia [Unknown]

NARRATIVE: CASE EVENT DATE: 201412
